FAERS Safety Report 9746350 (Version 2)
Quarter: 2014Q1

REPORT INFORMATION
  Report Type: Spontaneous
  Country: IT (occurrence: IT)
  Receive Date: 20131211
  Receipt Date: 20140131
  Transmission Date: 20141002
  Serious: Yes (Hospitalization)
  Sender: FDA-Public Use
  Company Number: IT-BRISTOL-MYERS SQUIBB COMPANY-19871177

PATIENT
  Age: 74 Year
  Sex: Male

DRUGS (12)
  1. COUMADIN TABS 5 MG [Suspect]
     Indication: ATRIAL FIBRILLATION
     Route: 048
     Dates: start: 20080101, end: 20131031
  2. AUGMENTIN [Interacting]
     Dosage: 1 DF=AUGMENTIN ^875/125 MG TABS^ DOSAGE/2GR
     Route: 048
     Dates: start: 20131026, end: 20131031
  3. URSODEOXYCHOLIC ACID [Concomitant]
     Indication: HYPERURICAEMIA
  4. ALLOPURINOL [Concomitant]
     Indication: HYPERURICAEMIA
  5. FUROSEMIDE [Concomitant]
  6. ALFUZOSIN HCL [Concomitant]
  7. FOLIC ACID [Concomitant]
  8. BISOPROLOL HEMIFUMARATE [Concomitant]
  9. LISINOPRIL [Concomitant]
  10. AVODART [Concomitant]
     Indication: BENIGN PROSTATIC HYPERPLASIA
     Dosage: CAPS
  11. ESKIM [Concomitant]
     Dosage: CAPS
  12. FLUIMUCIL [Concomitant]

REACTIONS (3)
  - Hepatic haematoma [Recovered/Resolved]
  - Hypocoagulable state [Recovered/Resolved]
  - Drug interaction [Unknown]
